FAERS Safety Report 14851571 (Version 3)
Quarter: 2018Q2

REPORT INFORMATION
  Report Type: Report from Study
  Country: None (occurrence: US)
  Receive Date: 20180507
  Receipt Date: 20180626
  Transmission Date: 20180711
  Serious: Yes (Other)
  Sender: FDA-Public Use
  Company Number: US-ABBVIE-17K-163-1958725-00

PATIENT
  Sex: Male

DRUGS (2)
  1. HUMIRA [Suspect]
     Active Substance: ADALIMUMAB
     Indication: ANKYLOSING SPONDYLITIS
     Route: 058
  2. HUMIRA [Suspect]
     Active Substance: ADALIMUMAB
     Route: 058

REACTIONS (29)
  - Fatigue [Unknown]
  - Splenomegaly [Unknown]
  - Diabetic neuropathy [Unknown]
  - Spinal deformity [Unknown]
  - Ammonia abnormal [Unknown]
  - Pain [Unknown]
  - Drug effect incomplete [Unknown]
  - Adverse drug reaction [Unknown]
  - Bone pain [Unknown]
  - Back pain [Unknown]
  - Hepatic function abnormal [Unknown]
  - Pancreatogenous diabetes [Unknown]
  - Throat tightness [Unknown]
  - Pancreatic disorder [Unknown]
  - Influenza like illness [Unknown]
  - Sinusitis [Unknown]
  - Malaise [Unknown]
  - White blood cell count decreased [Unknown]
  - Dementia [Unknown]
  - Somnolence [Unknown]
  - Platelet count decreased [Unknown]
  - Hepatic cirrhosis [Unknown]
  - Skin discolouration [Unknown]
  - Vasodilatation [Unknown]
  - Depression [Unknown]
  - Headache [Unknown]
  - Head discomfort [Unknown]
  - Weight decreased [Unknown]
  - Hypersensitivity [Unknown]

NARRATIVE: CASE EVENT DATE: 2017
